FAERS Safety Report 5446275-1 (Version None)
Quarter: 2007Q3

REPORT INFORMATION
  Report Type: 
  Country: None (occurrence: None)
  Receive Date: 20070731
  Receipt Date: 20070522
  Transmission Date: 20080115
  Serious: No
  Sender: FDA-Public Use
  Company Number: US200706004570

PATIENT
  Age: 53 Year
  Sex: Female
  Weight: 99.8 kg

DRUGS (2)
  1. BYETTA [Suspect]
     Dosage: 5 UG, 2/D, SUBCUTANEOUS   10 UG, 2/D, SUBCUTANEOUS
     Route: 058
     Dates: start: 20060601, end: 20060701
  2. BYETTA [Suspect]
     Dosage: 5 UG, 2/D, SUBCUTANEOUS   10 UG, 2/D, SUBCUTANEOUS
     Route: 058
     Dates: start: 20060701

REACTIONS (3)
  - CHILLS [None]
  - FEELING ABNORMAL [None]
  - FEELING COLD [None]
